FAERS Safety Report 7341797-0 (Version None)
Quarter: 2011Q1

REPORT INFORMATION
  Report Type: 
  Country: None (occurrence: None)
  Receive Date: 20110309
  Receipt Date: 20110303
  Transmission Date: 20110831
  Serious: Yes (Other)
  Sender: FDA-Public Use
  Company Number: CA-PFIZER INC-2011011043

PATIENT
  Age: 71 Year
  Sex: Female
  Weight: 65.8 kg

DRUGS (16)
  1. CELEBREX [Concomitant]
     Indication: ARTHRITIS
     Dosage: 100 MG, 2X/DAY
  2. PAXIL [Concomitant]
     Dosage: 5 MG, UNK
     Dates: end: 20110103
  3. TYLENOL (CAPLET) [Concomitant]
     Dosage: UNK
  4. CRESTOR [Concomitant]
     Indication: BLOOD CHOLESTEROL
     Dosage: 10 MG, 1X/DAY
  5. CO-RANITIDINE [Concomitant]
     Indication: DYSPEPSIA
     Dosage: 10 MG, 2X/DAY
  6. NITRO PUMP [Concomitant]
     Dosage: UNK
  7. ASPIRIN [Concomitant]
     Dosage: 81 MG, UNK
  8. ASAPHEN [Concomitant]
     Dosage: UNK
  9. CHAMPIX [Suspect]
     Dosage: 1 MG, 2X/DAY
     Dates: start: 20110101, end: 20110101
  10. ADVAIR DISKUS 100/50 [Concomitant]
     Indication: CHRONIC OBSTRUCTIVE PULMONARY DISEASE
     Dosage: 500 (2X250 DISCUS), 2X/DAY
  11. CHAMPIX [Suspect]
     Indication: SMOKING CESSATION THERAPY
     Dosage: UNK, TWICE DAILY
     Dates: start: 20110103
  12. CHAMPIX [Suspect]
     Dosage: 1MG AT 8AM AND 0.5MG AT 9PM
     Dates: start: 20110101
  13. CALTRATE [Concomitant]
     Dosage: UNK
  14. COVERSYL [Concomitant]
     Indication: HYPERTENSION
     Dosage: 6 MG, 1X/DAY
  15. DILTIAZEM [Concomitant]
     Dosage: UNK
  16. SPIRIVA [Concomitant]
     Indication: CHRONIC OBSTRUCTIVE PULMONARY DISEASE
     Dosage: 18 UG, 1X/DAY

REACTIONS (15)
  - ANGINA PECTORIS [None]
  - DRUG WITHDRAWAL SYNDROME [None]
  - ARTERIAL OCCLUSIVE DISEASE [None]
  - ANXIETY [None]
  - DYSGEUSIA [None]
  - FATIGUE [None]
  - DEPRESSION [None]
  - ABNORMAL DREAMS [None]
  - NAUSEA [None]
  - INSOMNIA [None]
  - ABDOMINAL DISCOMFORT [None]
  - DYSPNOEA [None]
  - HEADACHE [None]
  - CONSTIPATION [None]
  - NEGATIVE THOUGHTS [None]
